FAERS Safety Report 14860468 (Version 1)
Quarter: 2018Q2

REPORT INFORMATION
  Report Type: Not Available
  Country: US (occurrence: US)
  Receive Date: 20180508
  Receipt Date: 20180508
  Transmission Date: 20180711
  Serious: No
  Sender: FDA-Public Use
  Company Number: US-FOUNDATIONCONSUMERHC-2018-US-002258

PATIENT
  Age: 27 Year
  Sex: Female
  Weight: 48.53 kg

DRUGS (4)
  1. UNSPECIFIED ALBUTEROL INHALER [Concomitant]
     Dosage: UNSPECIFIED DOSE AS NEEDED.
     Route: 055
  2. GUMMI-VITE [Concomitant]
  3. LAMICTAL [Concomitant]
     Active Substance: LAMOTRIGINE
     Dosage: 250 MG TWICE PER DAY
     Route: 048
  4. PLAN B ONE-STEP [Suspect]
     Active Substance: LEVONORGESTREL
     Dosage: 1 DOSE X 1
     Route: 048
     Dates: start: 20180122, end: 20180122

REACTIONS (2)
  - Dizziness [Recovered/Resolved]
  - Vaginal haemorrhage [Not Recovered/Not Resolved]

NARRATIVE: CASE EVENT DATE: 20180128
